FAERS Safety Report 4447415-3 (Version None)
Quarter: 2004Q3

REPORT INFORMATION
  Report Type: 
  Country: None (occurrence: None)
  Receive Date: 20040823
  Receipt Date: 20040513
  Transmission Date: 20050211
  Serious: No
  Sender: FDA-Public Use
  Company Number: PHEH2004US02866

PATIENT
  Age: 60 Year
  Sex: Female

DRUGS (5)
  1. ZELNORM [Suspect]
     Indication: IRRITABLE BOWEL SYNDROME
     Dosage: 6 MG, QD, ORAL
     Route: 048
     Dates: start: 20031201, end: 20040201
  2. SINGULAIR ^DIECKMANN^ (MONTELUKAST SODIUM) [Concomitant]
  3. ESTRACE ^MEADS JOHNSON^ [Concomitant]
  4. ALBUTEROL [Concomitant]
  5. ANALGESIC LIQ [Concomitant]

REACTIONS (3)
  - ASTHMA [None]
  - BURSITIS [None]
  - CONDITION AGGRAVATED [None]
